FAERS Safety Report 17053584 (Version 1)
Quarter: 2019Q4

REPORT INFORMATION
  Report Type: Spontaneous
  Country: US (occurrence: US)
  Receive Date: 20191120
  Receipt Date: 20191120
  Transmission Date: 20200122
  Serious: Yes (Other)
  Sender: FDA-Public Use
  Company Number: None

PATIENT
  Age: 39 Year
  Sex: Female
  Weight: 67.5 kg

DRUGS (2)
  1. MULTIVITAMINE [Concomitant]
  2. GADAVIST [Suspect]
     Active Substance: GADOBUTROL
     Indication: CONTRAST MEDIA DEPOSITION
     Dates: start: 20191112, end: 20191112

REACTIONS (11)
  - Paraesthesia [None]
  - Muscle spasms [None]
  - Diarrhoea [None]
  - Liver disorder [None]
  - Contrast media reaction [None]
  - Nausea [None]
  - Decreased appetite [None]
  - Renal disorder [None]
  - Bone pain [None]
  - Renal pain [None]
  - Muscular weakness [None]

NARRATIVE: CASE EVENT DATE: 20191112
